FAERS Safety Report 17368419 (Version 1)
Quarter: 2020Q1

REPORT INFORMATION
  Report Type: Report from Study
  Country: MX (occurrence: MX)
  Receive Date: 20200204
  Receipt Date: 20200204
  Transmission Date: 20200409
  Serious: Yes (Death, Hospitalization)
  Sender: FDA-Public Use
  Company Number: MX-BAYER-2020-016598

PATIENT
  Age: 45 Year
  Sex: Female

DRUGS (1)
  1. BETAFERON [Suspect]
     Active Substance: INTERFERON BETA-1B
     Indication: MULTIPLE SCLEROSIS
     Dosage: UNK
     Dates: start: 20050311, end: 20190508

REACTIONS (7)
  - Strabismus [None]
  - Inappropriate schedule of product administration [None]
  - Stress [None]
  - Myocardial infarction [Fatal]
  - Vomiting [None]
  - Pyrexia [None]
  - Eye pain [None]

NARRATIVE: CASE EVENT DATE: 201903
